FAERS Safety Report 12391817 (Version 1)
Quarter: 2016Q2

REPORT INFORMATION
  Report Type: Spontaneous
  Country: GR (occurrence: GR)
  Receive Date: 20160523
  Receipt Date: 20160523
  Transmission Date: 20160815
  Serious: Yes (Other)
  Sender: FDA-Public Use
  Company Number: GR-009507513-1605GRC008563

PATIENT
  Sex: Female

DRUGS (1)
  1. ESMERON [Suspect]
     Active Substance: ROCURONIUM BROMIDE
     Route: 042

REACTIONS (2)
  - Vein rupture [Unknown]
  - Infusion site extravasation [Unknown]
